FAERS Safety Report 23724515 (Version 1)
Quarter: 2024Q2

REPORT INFORMATION
  Report Type: Spontaneous
  Country: US (occurrence: US)
  Receive Date: 20240409
  Receipt Date: 20240409
  Transmission Date: 20240715
  Serious: No
  Sender: FDA-Public Use
  Company Number: US-FOUNDATIONCONSUMERHC-2023-US-029648

PATIENT
  Age: 47 Year
  Sex: Female
  Weight: 56.7 kg

DRUGS (2)
  1. TAKE ACTION [Suspect]
     Active Substance: LEVONORGESTREL
     Indication: Post coital contraception
     Dosage: 1.5 MG TABLET, 1 TIME
     Route: 048
     Dates: start: 20230912, end: 20230912
  2. VITAMIN C [Concomitant]
     Active Substance: ASCORBIC ACID
     Dosage: TAKES INTERMITTENTLY

REACTIONS (1)
  - Vaginal haemorrhage [Not Recovered/Not Resolved]

NARRATIVE: CASE EVENT DATE: 20230913
